FAERS Safety Report 5317308-8 (Version None)
Quarter: 2007Q2

REPORT INFORMATION
  Report Type: 
  Country: None (occurrence: None)
  Receive Date: 20070504
  Receipt Date: 20070423
  Transmission Date: 20071010
  Serious: Yes (Disabling)
  Sender: FDA-Public Use
  Company Number: US-PFIZER INC-2007033651

PATIENT
  Sex: Male
  Weight: 101.36 kg

DRUGS (2)
  1. CHANTIX [Suspect]
     Indication: SMOKING CESSATION THERAPY
     Dates: start: 20070319, end: 20070415
  2. ACETYLSALICYLIC ACID SRT [Concomitant]

REACTIONS (6)
  - ANXIETY [None]
  - CRYING [None]
  - DEPRESSED MOOD [None]
  - DISABILITY [None]
  - IRRITABILITY [None]
  - PANIC ATTACK [None]
